FAERS Safety Report 9757917 (Version 2)
Quarter: 2014Q1

REPORT INFORMATION
  Report Type: Report from Study
  Country: JP (occurrence: JP)
  Receive Date: 20131216
  Receipt Date: 20140107
  Transmission Date: 20141002
  Serious: Yes (Other)
  Sender: FDA-Public Use
  Company Number: JP-ROCHE-1318012

PATIENT
  Age: 90 Year
  Sex: Female

DRUGS (10)
  1. METHOXY POLYETHYLENE GLYCOL-EPOETIN BETA [Suspect]
     Indication: NEPHROGENIC ANAEMIA
     Route: 058
     Dates: start: 20121228
  2. REBAMIPIDE [Concomitant]
     Route: 048
  3. LANSOPRAZOLE [Concomitant]
     Route: 048
  4. MOSAPRIDE CITRATE [Concomitant]
     Route: 048
  5. CILNIDIPINE [Concomitant]
     Route: 048
  6. DONEPEZIL HYDROCHLORIDE [Concomitant]
     Route: 048
  7. ALLOPURINOL [Concomitant]
     Route: 048
     Dates: end: 20130522
  8. CANDESARTAN CILEXETIL [Concomitant]
     Route: 048
  9. DIPYRIDAMOLE [Concomitant]
     Indication: NEPHROSCLEROSIS
     Route: 048
  10. FEBUXOSTAT [Concomitant]
     Route: 048
     Dates: start: 20130523

REACTIONS (1)
  - Renal failure chronic [Recovered/Resolved with Sequelae]
